FAERS Safety Report 4457748-2 (Version None)
Quarter: 2004Q3

REPORT INFORMATION
  Report Type: 
  Country: None (occurrence: None)
  Receive Date: 20040831
  Receipt Date: 20040602
  Transmission Date: 20050211
  Serious: No
  Sender: FDA-Public Use
  Company Number: FABR-10614

PATIENT
  Age: 35 Year
  Sex: Female
  Weight: 74.1 kg

DRUGS (4)
  1. FABRAZYME [Suspect]
     Indication: FABRY'S DISEASE
     Dosage: 70 MG Q2WKS IV
     Route: 042
     Dates: start: 20030724
  2. TOPROL-XL [Concomitant]
  3. MOTRIN [Concomitant]
  4. B12 [Concomitant]

REACTIONS (6)
  - ABDOMINAL DISTENSION [None]
  - ANXIETY [None]
  - HEADACHE [None]
  - NECK PAIN [None]
  - PAIN [None]
  - WEIGHT INCREASED [None]
